FAERS Safety Report 9363283 (Version 1)
Quarter: 2013Q2

REPORT INFORMATION
  Report Type: Spontaneous
  Country: US (occurrence: US)
  Receive Date: 20130624
  Receipt Date: 20130624
  Transmission Date: 20140414
  Serious: No
  Sender: FDA-Public Use
  Company Number: US-PFIZER INC-2013187555

PATIENT
  Age: 65 Year
  Sex: Female
  Weight: 65.76 kg

DRUGS (1)
  1. CELEBREX [Suspect]
     Indication: SPINAL DISORDER
     Dosage: 200 MG, AS NEEDED
     Route: 048
     Dates: end: 201305

REACTIONS (1)
  - Hypersensitivity [Unknown]
